FAERS Safety Report 8617283-4 (Version None)
Quarter: 2012Q3

REPORT INFORMATION
  Report Type: 
  Country: None (occurrence: None)
  Receive Date: 20120823
  Receipt Date: 20120813
  Transmission Date: 20120928
  Serious: No
  Sender: FDA-Public Use
  Company Number: US-ASTRAZENECA-2012SE57035

PATIENT
  Age: 71 Year
  Sex: Female
  Weight: 83.9 kg

DRUGS (4)
  1. NEXIUM [Suspect]
     Dosage: DAILY
     Route: 048
     Dates: start: 19920101, end: 20020101
  2. HYDROCODONE BITARTRATE [Concomitant]
     Indication: PAIN
  3. NEXIUM [Suspect]
     Dosage: BID
     Route: 048
     Dates: start: 20020101, end: 20020101
  4. NEXIUM [Suspect]
     Dosage: DIALY
     Route: 048
     Dates: start: 20020101

REACTIONS (7)
  - DERMATITIS ALLERGIC [None]
  - DIARRHOEA [None]
  - ABDOMINAL DISCOMFORT [None]
  - GASTRIC DISORDER [None]
  - EMPHYSEMA [None]
  - OFF LABEL USE [None]
  - DRUG DOSE OMISSION [None]
